FAERS Safety Report 12681882 (Version 1)
Quarter: 2016Q3

REPORT INFORMATION
  Report Type: Spontaneous
  Country: OM (occurrence: OM)
  Receive Date: 20160824
  Receipt Date: 20160824
  Transmission Date: 20161109
  Serious: Yes (Other)
  Sender: FDA-Public Use
  Company Number: OM-ACTAVIS-2016-18128

PATIENT
  Age: 34 Year

DRUGS (1)
  1. MORPHINE (UNKNOWN) [Suspect]
     Active Substance: MORPHINE
     Indication: SICKLE CELL ANAEMIA WITH CRISIS
     Dosage: UNKNOWN
     Route: 065

REACTIONS (2)
  - Foetal distress syndrome [Unknown]
  - Maternal exposure timing unspecified [Unknown]
